FAERS Safety Report 12543966 (Version 1)
Quarter: 2016Q3

REPORT INFORMATION
  Report Type: Spontaneous
  Country: US (occurrence: None)
  Receive Date: 20160708
  Receipt Date: 20160708
  Transmission Date: 20161109
  Serious: No
  Sender: FDA-Public Use
  Company Number: None

PATIENT
  Age: 49 Year
  Sex: Female
  Weight: 140.6 kg

DRUGS (1)
  1. VICTOZA [Suspect]
     Active Substance: LIRAGLUTIDE
     Indication: TYPE 2 DIABETES MELLITUS
     Route: 058
     Dates: start: 20160617, end: 20160703

REACTIONS (4)
  - Injection site pruritus [None]
  - Injection site pain [None]
  - Wrong technique in product usage process [None]
  - Injection site rash [None]

NARRATIVE: CASE EVENT DATE: 20160705
